FAERS Safety Report 17441071 (Version 2)
Quarter: 2020Q1

REPORT INFORMATION
  Report Type: Spontaneous
  Country: JP (occurrence: JP)
  Receive Date: 20200220
  Receipt Date: 20200221
  Transmission Date: 20200409
  Serious: Yes (Other)
  Sender: FDA-Public Use
  Company Number: JP-PFIZER INC-2016166529

PATIENT
  Age: 54 Year
  Sex: Female
  Weight: 43.4 kg

DRUGS (1)
  1. CEFTRIAXONE SODIUM. [Suspect]
     Active Substance: CEFTRIAXONE SODIUM
     Indication: DIVERTICULITIS
     Dosage: 2 G, DAILY
     Route: 042

REACTIONS (1)
  - Pseudocholelithiasis [Recovered/Resolved]
